FAERS Safety Report 5598619-8 (Version None)
Quarter: 2008Q1

REPORT INFORMATION
  Report Type: 
  Country: None (occurrence: None)
  Receive Date: 20080122
  Receipt Date: 20070905
  Transmission Date: 20080703
  Serious: No
  Sender: FDA-Public Use
  Company Number: US-BAUSCH-2007BL003207

PATIENT
  Age: 68 Year
  Sex: Male

DRUGS (8)
  1. DESMOPRESSIN ACETATE [Suspect]
     Indication: BENIGN PROSTATIC HYPERPLASIA
     Route: 045
     Dates: start: 20070831, end: 20070901
  2. DESMOPRESSIN ACETATE [Suspect]
     Indication: OFF LABEL USE
     Route: 045
     Dates: start: 20070831, end: 20070901
  3. DESMOPRESSIN ACETATE [Suspect]
     Route: 045
     Dates: start: 20070903, end: 20070903
  4. DESMOPRESSIN ACETATE [Suspect]
     Route: 045
     Dates: start: 20070903, end: 20070903
  5. ALTACE [Concomitant]
     Indication: HYPERTENSION
     Route: 048
  6. TENORMIN /NEZ/ [Concomitant]
     Indication: HYPERTENSION
     Route: 048
  7. LIPITOR [Concomitant]
     Indication: BLOOD CHOLESTEROL INCREASED
     Route: 048
  8. STARLIX [Concomitant]
     Indication: DIABETES MELLITUS

REACTIONS (5)
  - BLOOD CHLORIDE DECREASED [None]
  - BLOOD SODIUM DECREASED [None]
  - DIARRHOEA [None]
  - FATIGUE [None]
  - NAUSEA [None]
